FAERS Safety Report 6908597-4 (Version None)
Quarter: 2010Q3

REPORT INFORMATION
  Report Type: 
  Country: None (occurrence: None)
  Receive Date: 20100805
  Receipt Date: 20100802
  Transmission Date: 20110219
  Serious: Yes (Hospitalization)
  Sender: FDA-Public Use
  Company Number: SE-MERCK-1008SWE00004

PATIENT
  Age: 57 Year
  Sex: Male

DRUGS (5)
  1. ZOCOR [Suspect]
     Indication: CEREBRAL THROMBOSIS
     Route: 048
     Dates: start: 20090601, end: 20090101
  2. ZOCOR [Suspect]
     Route: 048
     Dates: start: 20090101, end: 20091201
  3. PERSANTINE [Concomitant]
     Route: 065
  4. TRAMADOL HYDROCHLORIDE [Concomitant]
     Route: 065
  5. TROMBYL [Concomitant]
     Route: 065

REACTIONS (4)
  - ABDOMINAL PAIN [None]
  - ARTHRALGIA [None]
  - HYPERAESTHESIA [None]
  - MUSCLE SPASMS [None]
